FAERS Safety Report 7620371-2 (Version None)
Quarter: 2011Q3

REPORT INFORMATION
  Report Type: 
  Country: None (occurrence: None)
  Receive Date: 20110718
  Receipt Date: 20110718
  Transmission Date: 20111222
  Serious: No
  Sender: FDA-Public Use
  Company Number: None

PATIENT
  Age: 62 Year
  Sex: Male
  Weight: 95.254 kg

DRUGS (1)
  1. LISINOPRIL [Suspect]
     Indication: TYPE 2 DIABETES MELLITUS
     Dosage: 5MG
     Route: 048
     Dates: start: 20080620, end: 20110420

REACTIONS (3)
  - PRODUCT SUBSTITUTION ISSUE [None]
  - MUSCLE SPASMS [None]
  - INSOMNIA [None]
